FAERS Safety Report 7130367-5 (Version None)
Quarter: 2010Q4

REPORT INFORMATION
  Report Type: 
  Country: None (occurrence: None)
  Receive Date: 20101201
  Receipt Date: 20101029
  Transmission Date: 20110411
  Serious: Yes (Hospitalization)
  Sender: FDA-Public Use
  Company Number: DE-AMGEN-QUU444443

PATIENT

DRUGS (8)
  1. ETANERCEPT [Suspect]
     Indication: PSORIASIS
     Dosage: UNK UNK, UNK
     Route: 058
     Dates: start: 20090601, end: 20100806
  2. METHYLPREDNISOLONE [Concomitant]
  3. DOXYCYCLINE [Concomitant]
  4. EUTHYROX [Concomitant]
  5. AMLODIPINE [Concomitant]
  6. SYMBICORT [Concomitant]
  7. SALBUTAMOL [Concomitant]
  8. OMEPRAZOLE [Concomitant]

REACTIONS (1)
  - NASAL POLYPS [None]
